FAERS Safety Report 16185114 (Version 9)
Quarter: 2020Q3

REPORT INFORMATION
  Report Type: Spontaneous
  Country: US (occurrence: US)
  Receive Date: 20190411
  Receipt Date: 20200706
  Transmission Date: 20201102
  Serious: No
  Sender: FDA-Public Use
  Company Number: US-PFIZER INC-2019149990

PATIENT
  Age: 80 Year
  Sex: Female
  Weight: 47.63 kg

DRUGS (3)
  1. PREMARIN [Suspect]
     Active Substance: ESTROGENS, CONJUGATED
     Indication: POSTMENOPAUSE
  2. PREMARIN [Suspect]
     Active Substance: ESTROGENS, CONJUGATED
     Indication: PROPHYLAXIS
     Dosage: 0.625 MG, ONCE DAILY
     Route: 048
  3. ALDACTONE [Concomitant]
     Active Substance: SPIRONOLACTONE
     Indication: ALOPECIA
     Dosage: UNK, 1X/DAY [25]
     Route: 048

REACTIONS (6)
  - Body height decreased [Unknown]
  - Drug hypersensitivity [Not Recovered/Not Resolved]
  - Fall [Recovered/Resolved]
  - Allergic cough [Not Recovered/Not Resolved]
  - Contusion [Unknown]
  - Influenza [Recovered/Resolved]
